FAERS Safety Report 5370813-0 (Version None)
Quarter: 2007Q2

REPORT INFORMATION
  Report Type: 
  Country: None (occurrence: None)
  Receive Date: 20070626
  Receipt Date: 20070620
  Transmission Date: 20071010
  Serious: Yes (Disabling)
  Sender: FDA-Public Use
  Company Number: US-KINGPHARMUSA00001-K200700096

PATIENT

DRUGS (3)
  1. ALTACE [Suspect]
     Indication: HYPERTENSION
     Dosage: 10 MG, QD
     Route: 048
     Dates: start: 20060313, end: 20061201
  2. CENTYL [Concomitant]
     Indication: HYPERTENSION
     Dosage: 5 MG, UNK
     Route: 048
     Dates: start: 20060313
  3. DIXARIT [Concomitant]
     Indication: MENOPAUSAL SYMPTOMS
     Dosage: 25 UG, PRN
     Route: 048
     Dates: start: 20060131

REACTIONS (1)
  - ALOPECIA [None]
